FAERS Safety Report 6485285-2 (Version None)
Quarter: 2009Q4

REPORT INFORMATION
  Report Type: 
  Country: None (occurrence: None)
  Receive Date: 20091209
  Receipt Date: 20091202
  Transmission Date: 20100525
  Serious: Yes (Hospitalization, Other)
  Sender: FDA-Public Use
  Company Number: US-MERCK-0901USA00888

PATIENT
  Age: 62 Year
  Sex: Female

DRUGS (4)
  1. FOSAMAX [Suspect]
     Indication: OSTEOPOROSIS
     Route: 048
     Dates: start: 20050101, end: 20080101
  2. PREDNISONE [Concomitant]
     Route: 065
     Dates: start: 20000101
  3. HORMONES (UNSPECIFIED) [Concomitant]
     Route: 065
     Dates: start: 19890101
  4. EFFEXOR [Concomitant]
     Route: 065
     Dates: start: 20040101

REACTIONS (12)
  - ABDOMINAL PAIN UPPER [None]
  - ANGIOPATHY [None]
  - BACK DISORDER [None]
  - BONE DENSITY DECREASED [None]
  - CEREBROVASCULAR ACCIDENT [None]
  - DYSGEUSIA [None]
  - GASTRIC DISORDER [None]
  - HYPERLIPIDAEMIA [None]
  - ISCHAEMIA [None]
  - OSTEONECROSIS [None]
  - PAIN [None]
  - STOMATITIS [None]
